FAERS Safety Report 4554590-9 (Version None)
Quarter: 2005Q1

REPORT INFORMATION
  Report Type: 
  Country: None (occurrence: None)
  Receive Date: 20050118
  Receipt Date: 20030605
  Transmission Date: 20050727
  Serious: Yes (Death, Hospitalization, Disabling)
  Sender: FDA-Public Use
  Company Number: US-MERCK-0306USA00807

PATIENT
  Age: 53 Year
  Sex: Female

DRUGS (2)
  1. VIOXX [Suspect]
     Route: 048
     Dates: start: 19991027, end: 20021220
  2. NAPROSYN [Suspect]
     Route: 065

REACTIONS (39)
  - ABDOMINAL PAIN LOWER [None]
  - ADVERSE EVENT [None]
  - ANAEMIA [None]
  - ARRHYTHMIA [None]
  - ATRIAL FLUTTER [None]
  - AZOTAEMIA [None]
  - BRONCHIAL CARCINOMA [None]
  - CANDIDIASIS [None]
  - CARDIO-RESPIRATORY ARREST [None]
  - CARDIOMEGALY [None]
  - CAROTID BRUIT [None]
  - CHEST DISCOMFORT [None]
  - CHOLELITHIASIS [None]
  - CORONARY ARTERY ATHEROSCLEROSIS [None]
  - DYSPHAGIA [None]
  - DYSPNOEA [None]
  - EPICONDYLITIS [None]
  - GAMMOPATHY [None]
  - GASTROOESOPHAGEAL REFLUX DISEASE [None]
  - HAEMATURIA [None]
  - HYPOTENSION [None]
  - INTERSTITIAL LUNG DISEASE [None]
  - JAUNDICE [None]
  - LEUKOCYTOSIS [None]
  - MULTI-ORGAN FAILURE [None]
  - NEPHROPATHY TOXIC [None]
  - NEURALGIA [None]
  - PULMONARY OEDEMA [None]
  - RENAL FAILURE [None]
  - RESPIRATORY FAILURE [None]
  - RHEUMATOID ARTHRITIS [None]
  - SEPSIS [None]
  - SEPSIS SYNDROME [None]
  - TACHYCARDIA [None]
  - UPPER RESPIRATORY TRACT INFECTION [None]
  - URINARY TRACT INFECTION [None]
  - UROSEPSIS [None]
  - VENOUS INSUFFICIENCY [None]
  - WEIGHT DECREASED [None]
